FAERS Safety Report 9201676 (Version 1)
Quarter: 2013Q2

REPORT INFORMATION
  Report Type: Spontaneous
  Country: MX (occurrence: MX)
  Receive Date: 20130401
  Receipt Date: 20130401
  Transmission Date: 20140414
  Serious: Yes (Other)
  Sender: FDA-Public Use
  Company Number: PHHY2013MX030779

PATIENT
  Age: 78 Year
  Sex: Female

DRUGS (3)
  1. ACLASTA [Suspect]
     Indication: OSTEOPOROSIS
     Dosage: 5 MG /100 ML
     Route: 042
  2. DOLO-NEUROBION (DICLOFENAC SODIUM/VIT B1 HCL/VIT B6 HCL/VIT B12) [Concomitant]
     Indication: ASTHENIA
     Dosage: UNK UKN, UNK
     Dates: start: 201303
  3. CALTRATE//CALCIUM CARBONATE [Concomitant]
     Indication: BONE DISORDER

REACTIONS (4)
  - Arthropathy [Not Recovered/Not Resolved]
  - Nausea [Not Recovered/Not Resolved]
  - Vomiting [Not Recovered/Not Resolved]
  - Dehydration [Not Recovered/Not Resolved]
